FAERS Safety Report 24204462 (Version 3)
Quarter: 2024Q3

REPORT INFORMATION
  Report Type: Spontaneous
  Country: US (occurrence: US)
  Receive Date: 20240813
  Receipt Date: 20240918
  Transmission Date: 20241017
  Serious: Yes (Other)
  Sender: JOHNSON AND JOHNSON
  Company Number: US-JNJFOC-20240811553

PATIENT
  Age: 60 Year
  Sex: Male

DRUGS (3)
  1. INVEGA SUSTENNA [Suspect]
     Active Substance: PALIPERIDONE PALMITATE
     Indication: Schizoaffective disorder
     Dosage: 21- 28 DAYS
     Route: 030
     Dates: start: 201509, end: 202401
  2. INVEGA SUSTENNA [Suspect]
     Active Substance: PALIPERIDONE PALMITATE
  3. INVEGA SUSTENNA [Suspect]
     Active Substance: PALIPERIDONE PALMITATE

REACTIONS (23)
  - Renal failure [Unknown]
  - Cardiac failure congestive [Unknown]
  - Pulmonary embolism [Unknown]
  - Pulmonary thrombosis [Unknown]
  - Oxygen saturation decreased [Unknown]
  - Hypotension [Unknown]
  - Erectile dysfunction [Unknown]
  - Suicidal ideation [Unknown]
  - Hallucination, visual [Unknown]
  - Hallucination, auditory [Unknown]
  - Homicidal ideation [Unknown]
  - Irritability [Unknown]
  - Loss of libido [Unknown]
  - Penile size reduced [Unknown]
  - Dental caries [Unknown]
  - Dry mouth [Unknown]
  - Visual impairment [Unknown]
  - Nocturnal dyspnoea [Unknown]
  - Dyspnoea exertional [Unknown]
  - Tremor [Unknown]
  - Neck pain [Unknown]
  - Breast enlargement [Unknown]
  - Depression [Unknown]
